FAERS Safety Report 4366374-5 (Version None)
Quarter: 2004Q2

REPORT INFORMATION
  Report Type: 
  Country: None (occurrence: None)
  Receive Date: 20040527
  Receipt Date: 20040309
  Transmission Date: 20050107
  Serious: No
  Sender: FDA-Public Use
  Company Number: US-GLAXOSMITHKLINE-A0501935A

PATIENT
  Sex: Male

DRUGS (7)
  1. ALBUTEROL [Suspect]
     Indication: EMPHYSEMA
     Dosage: 4PUFF FOUR TIMES PER DAY
     Route: 055
  2. FLOVENT [Suspect]
     Indication: EMPHYSEMA
     Dosage: 2PUFF THREE TIMES PER DAY
     Route: 055
  3. SEREVENT [Suspect]
     Dosage: 1PUFF TWICE PER DAY
     Route: 055
     Dates: start: 20040308
  4. ACIPHEX [Concomitant]
  5. ATENOLOL [Concomitant]
  6. HYDROCHLOROTHIAZIDE [Concomitant]
  7. SIMVASTATIN [Concomitant]

REACTIONS (2)
  - DRUG INEFFECTIVE [None]
  - HOARSENESS [None]
